FAERS Safety Report 9690276 (Version 2)
Quarter: 2013Q4

REPORT INFORMATION
  Report Type: Report from Study
  Country: JP (occurrence: JP)
  Receive Date: 20131115
  Receipt Date: 20131214
  Transmission Date: 20140711
  Serious: Yes (Other)
  Sender: FDA-Public Use
  Company Number: JP-ROCHE-1302791

PATIENT
  Sex: 0

DRUGS (6)
  1. BEVACIZUMAB [Suspect]
     Indication: NON-SMALL CELL LUNG CANCER
     Dosage: PER DOSE AT 3-4 WEEK INTERVALS
     Route: 065
  2. ERLOTINIB [Suspect]
     Indication: NON-SMALL CELL LUNG CANCER
     Route: 048
  3. DOCETAXEL [Suspect]
     Indication: NON-SMALL CELL LUNG CANCER
     Route: 065
  4. TS-1 [Suspect]
     Indication: NON-SMALL CELL LUNG CANCER
     Route: 065
  5. PEMETREXED [Suspect]
     Indication: NON-SMALL CELL LUNG CANCER
     Route: 065
  6. GEMCITABINE [Suspect]
     Indication: NON-SMALL CELL LUNG CANCER
     Route: 065

REACTIONS (29)
  - White blood cell count decreased [Recovering/Resolving]
  - Neutrophil count decreased [Recovering/Resolving]
  - Platelet count decreased [Recovering/Resolving]
  - Left ventricular dysfunction [Recovering/Resolving]
  - Hyperglycaemia [Recovering/Resolving]
  - Syncope [Recovering/Resolving]
  - Aortic aneurysm [Recovering/Resolving]
  - Anaemia [Recovering/Resolving]
  - Decreased appetite [Recovering/Resolving]
  - Febrile neutropenia [Recovering/Resolving]
  - Haemoptysis [Recovering/Resolving]
  - Oedema peripheral [Recovering/Resolving]
  - Generalised oedema [Recovering/Resolving]
  - Transaminases increased [Recovering/Resolving]
  - Blood bilirubin increased [Recovering/Resolving]
  - Osteonecrosis of jaw [Recovering/Resolving]
  - Headache [Recovering/Resolving]
  - Vomiting [Recovering/Resolving]
  - Hypertension [Recovering/Resolving]
  - Acute lung injury [Recovering/Resolving]
  - Hypoxia [Recovering/Resolving]
  - Paronychia [Recovering/Resolving]
  - Pneumonia [Recovering/Resolving]
  - Cardiac failure [Recovering/Resolving]
  - Fatigue [Recovering/Resolving]
  - Pulmonary embolism [Recovering/Resolving]
  - Haemorrhoids [Recovering/Resolving]
  - Diarrhoea [Recovering/Resolving]
  - Proteinuria [Recovering/Resolving]
